FAERS Safety Report 8845555 (Version 2)
Quarter: 2012Q4

REPORT INFORMATION
  Report Type: 
  Country: NL (occurrence: NL)
  Receive Date: 20121017
  Receipt Date: 20121124
  Transmission Date: 20130627
  Serious: Yes (Death, Hospitalization)
  Sender: FDA-Public Use
  Company Number: PHHY2012NL091932

PATIENT
  Age: 75 Year
  Sex: Female

DRUGS (6)
  1. ZOLEDRONATE [Suspect]
     Indication: OSTEOPOROSIS
     Dosage: 5 mg, once a year infusion
     Route: 042
  2. PREDNISONE [Suspect]
     Indication: AUTOIMMUNE HEPATITIS
  3. PAMIDRONATE [Suspect]
     Indication: OSTEOPOROSIS
     Dosage: 60 mg, every 3 months
  4. AZATHIOPRINE [Concomitant]
  5. VITAMIN D [Concomitant]
     Indication: OSTEOPOROSIS
  6. CALCIUM [Concomitant]
     Indication: OSTEOPOROSIS

REACTIONS (10)
  - Candida pneumonia [Fatal]
  - Candidiasis [Fatal]
  - Respiratory failure [Fatal]
  - Pseudomonas infection [Unknown]
  - Aphagia [Unknown]
  - Malnutrition [Unknown]
  - Osteonecrosis of jaw [Unknown]
  - Oral infection [Unknown]
  - Pain in jaw [Unknown]
  - Drug ineffective [Unknown]
